FAERS Safety Report 15788308 (Version 1)
Quarter: 2019Q1

REPORT INFORMATION
  Report Type: Spontaneous
  Country: JP (occurrence: JP)
  Receive Date: 20190104
  Receipt Date: 20190104
  Transmission Date: 20190417
  Serious: Yes (Hospitalization)
  Sender: FDA-Public Use
  Company Number: 248520

PATIENT
  Age: 28 Year
  Sex: Male

DRUGS (9)
  1. CYSTADANE [Suspect]
     Active Substance: BETAINE
     Indication: HOMOCYSTINURIA
     Route: 048
     Dates: start: 20151008
  2. FOLIC ACID. [Concomitant]
     Active Substance: FOLIC ACID
     Route: 048
  3. BACLOFEN. [Concomitant]
     Active Substance: BACLOFEN
     Route: 037
  4. METHYCOBAL (MECOBALAMIN) [Concomitant]
     Route: 048
  5. PREGABALIN. [Concomitant]
     Active Substance: PREGABALIN
     Route: 048
  6. ROSUVASTATIN CALCIUM. [Concomitant]
     Active Substance: ROSUVASTATIN CALCIUM
     Route: 048
  7. TIZANIDINE HYDROCHLORIDE. [Concomitant]
     Active Substance: TIZANIDINE HYDROCHLORIDE
     Route: 048
  8. PYRIDOXAL [Concomitant]
     Active Substance: PYRIDOXAL
     Route: 048
  9. URINORM (BENZBROMARONE) [Concomitant]
     Route: 048

REACTIONS (2)
  - Implant site infection [Recovered/Resolved]
  - Overdose [Not Recovered/Not Resolved]

NARRATIVE: CASE EVENT DATE: 20151008
